FAERS Safety Report 26086053 (Version 1)
Quarter: 2025Q4

REPORT INFORMATION
  Report Type: Spontaneous
  Country: EU (occurrence: EU)
  Receive Date: 20251125
  Receipt Date: 20251125
  Transmission Date: 20260119
  Serious: Yes (Hospitalization)
  Sender: ASTELLAS
  Company Number: EU-ASTELLAS-2025-AER-063397

PATIENT
  Age: 44 Year
  Sex: Female

DRUGS (11)
  1. XOSPATA [Suspect]
     Active Substance: GILTERITINIB
     Indication: Acute myeloid leukaemia
     Dosage: 120 MG/DAY
     Route: 065
     Dates: start: 20210825
  2. XOSPATA [Suspect]
     Active Substance: GILTERITINIB
     Dosage: DOSAGE INCREASED (2ND MONTH)
     Route: 065
     Dates: start: 20210927
  3. XOSPATA [Suspect]
     Active Substance: GILTERITINIB
     Route: 065
     Dates: end: 20241019
  4. ISAVUCONAZOLE [Concomitant]
     Active Substance: ISAVUCONAZOLE
     Indication: Product used for unknown indication
     Route: 065
  5. MIDOSTAURIN [Concomitant]
     Active Substance: MIDOSTAURIN
     Indication: Product used for unknown indication
     Dosage: SECOND CYCLE OF A18 + MIDOSTAURIN REGIMEN
     Route: 065
     Dates: start: 20210403
  6. MIDOSTAURIN [Concomitant]
     Active Substance: MIDOSTAURIN
     Dosage: 50 MG TWICE DAILY FROM DAY 9 TO DAY 21
     Route: 065
     Dates: start: 20210212
  7. MIDOSTAURIN [Concomitant]
     Active Substance: MIDOSTAURIN
     Route: 065
     Dates: start: 20210601
  8. BISOPROLOL [Concomitant]
     Active Substance: BISOPROLOL
     Indication: Product used for unknown indication
     Dosage: 1.25 MG/DAY
     Route: 065
  9. RAMIPRIL [Concomitant]
     Active Substance: RAMIPRIL
     Indication: Product used for unknown indication
     Dosage: 2.5 MG/DAY
     Route: 065
  10. HYDROXYUREA [Concomitant]
     Active Substance: HYDROXYUREA
     Indication: Product used for unknown indication
     Route: 065
  11. CYTARABINE [Concomitant]
     Active Substance: CYTARABINE
     Indication: Product used for unknown indication
     Dosage: FOR 2 DAYS.
     Route: 065

REACTIONS (5)
  - Pyelonephritis [Unknown]
  - Autoimmune thyroiditis [Unknown]
  - Bacterial disease carrier [Unknown]
  - Escherichia infection [Unknown]
  - Pathogen resistance [Unknown]
